FAERS Safety Report 6176399-5 (Version None)
Quarter: 2009Q2

REPORT INFORMATION
  Report Type: 
  Country: None (occurrence: None)
  Receive Date: 20090501
  Receipt Date: 20090422
  Transmission Date: 20091009
  Serious: Yes (Hospitalization, Other)
  Sender: FDA-Public Use
  Company Number: JP-JNJFOC-20090204813

PATIENT
  Age: 37 Year
  Sex: Female
  Weight: 45 kg

DRUGS (2)
  1. RISPERDAL [Suspect]
     Indication: DISSOCIATIVE DISORDER
     Route: 048
  2. VEGETAMIN A [Suspect]
     Indication: INSOMNIA
     Route: 048

REACTIONS (1)
  - HEPATITIS [None]
